FAERS Safety Report 12739804 (Version 1)
Quarter: 2016Q3

REPORT INFORMATION
  Report Type: Spontaneous
  Country: JP (occurrence: JP)
  Receive Date: 20160913
  Receipt Date: 20160913
  Transmission Date: 20161109
  Serious: Yes (Death, Other)
  Sender: FDA-Public Use
  Company Number: JP-ELI_LILLY_AND_COMPANY-JP201609003941

PATIENT
  Age: 68 Year
  Sex: Male

DRUGS (1)
  1. ERBITUX [Suspect]
     Active Substance: CETUXIMAB
     Indication: LARYNGEAL CANCER
     Dosage: UNK UNK, UNKNOWN
     Route: 042

REACTIONS (4)
  - Carotid aneurysm rupture [Fatal]
  - Infection [Unknown]
  - Dermatitis [Unknown]
  - Mucosal inflammation [Unknown]
